FAERS Safety Report 7769581-4 (Version None)
Quarter: 2011Q3

REPORT INFORMATION
  Report Type: 
  Country: None (occurrence: None)
  Receive Date: 20110922
  Receipt Date: 20110413
  Transmission Date: 20111222
  Serious: No
  Sender: FDA-Public Use
  Company Number: US-ASTRAZENECA-2009UW21594

PATIENT
  Age: 514 Month
  Sex: Female
  Weight: 122 kg

DRUGS (10)
  1. GLUCOTROL XL [Concomitant]
     Dates: start: 20060119
  2. AMBIEN [Concomitant]
     Dates: start: 20060119
  3. ZOCOR [Concomitant]
     Dates: start: 20060214
  4. SEROQUEL [Suspect]
     Indication: BIPOLAR DISORDER
     Route: 048
     Dates: start: 20030101
  5. LISINOPRIL [Concomitant]
     Dates: start: 20060127
  6. SEROQUEL [Suspect]
     Indication: MANIA
     Route: 048
     Dates: start: 20030101
  7. GLIPIZIDE [Concomitant]
     Dosage: 2.5 MG-5 MG
     Dates: start: 20060119
  8. SEROQUEL [Suspect]
     Dosage: 200 MG-300MG
     Route: 048
     Dates: start: 20041201, end: 20090701
  9. SEROQUEL [Suspect]
     Dosage: 200 MG-300MG
     Route: 048
     Dates: start: 20041201, end: 20090701
  10. DEPAKOTE [Concomitant]
     Dates: start: 20041218

REACTIONS (4)
  - TYPE 2 DIABETES MELLITUS [None]
  - TYPE 1 DIABETES MELLITUS [None]
  - OBESITY [None]
  - DIABETES MELLITUS INADEQUATE CONTROL [None]
